FAERS Safety Report 16233159 (Version 1)
Quarter: 2019Q2

REPORT INFORMATION
  Report Type: Spontaneous
  Country: US (occurrence: US)
  Receive Date: 20190424
  Receipt Date: 20190424
  Transmission Date: 20190711
  Serious: Yes (Other)
  Sender: FDA-Public Use
  Company Number: US-009507513-1904USA007853

PATIENT
  Age: 66 Year
  Sex: Male
  Weight: 43.08 kg

DRUGS (3)
  1. LAMIVUDINE. [Concomitant]
     Active Substance: LAMIVUDINE
     Dosage: UNK
  2. ISENTRESS [Suspect]
     Active Substance: RALTEGRAVIR POTASSIUM
     Indication: HIV INFECTION
     Dosage: 400 MILLIGRAM, BID (TWICE DAILY)
     Route: 048
     Dates: end: 20190414
  3. VIREAD [Concomitant]
     Active Substance: TENOFOVIR DISOPROXIL FUMARATE
     Dosage: UNK

REACTIONS (1)
  - Gastrointestinal tube insertion [Not Recovered/Not Resolved]

NARRATIVE: CASE EVENT DATE: 201904
